FAERS Safety Report 9251745 (Version 3)
Quarter: 2013Q3

REPORT INFORMATION
  Report Type: Spontaneous
  Country: US (occurrence: US)
  Receive Date: 20130424
  Receipt Date: 20130808
  Transmission Date: 20140515
  Serious: No
  Sender: FDA-Public Use
  Company Number: US-PFIZER INC-2013125304

PATIENT
  Age: 71 Year
  Sex: Male

DRUGS (1)
  1. NICOTROL INHALER [Suspect]
     Dosage: 10 MG/ CARTRIDGE (168 CT)

REACTIONS (5)
  - Drug ineffective [Unknown]
  - Malaise [Unknown]
  - Nausea [Unknown]
  - Aggression [Unknown]
  - Throat irritation [Unknown]
